FAERS Safety Report 7584006-X (Version None)
Quarter: 2011Q2

REPORT INFORMATION
  Report Type: 
  Country: None (occurrence: None)
  Receive Date: 20110623
  Receipt Date: 20110615
  Transmission Date: 20111010
  Serious: Yes (Hospitalization, Other)
  Sender: FDA-Public Use
  Company Number: 2009AC000362

PATIENT
  Age: 70 Year
  Sex: Female

DRUGS (51)
  1. FUROSEMIDE [Concomitant]
  2. AMITRIPTYLINE HCL [Concomitant]
  3. ULTRAM [Concomitant]
  4. HYDROMORPHONE HCL [Concomitant]
  5. NEURONTIN [Concomitant]
  6. UTA [Concomitant]
  7. NASONEX [Concomitant]
  8. NEXIUM [Concomitant]
  9. APRESOLINE [Concomitant]
  10. VIBRAMYCIN [Concomitant]
  11. DIFIL-G [Concomitant]
  12. TESSALON [Concomitant]
  13. MULTI-VITAMINS [Concomitant]
  14. DIGOXIN [Suspect]
     Dosage: 0.25 MG;PO
     Route: 048
     Dates: start: 20020815
  15. AMITRIPTYLINE HCL [Concomitant]
  16. FUROSEMIDE [Concomitant]
  17. PLAVIX [Concomitant]
  18. LEVOTHYROXINE SODIUM [Concomitant]
  19. XENICAL [Concomitant]
  20. CEPHALEXIN [Concomitant]
  21. CELEBREX [Concomitant]
  22. DIGOXIN [Suspect]
     Dosage: 0.125 MG;QD;PO
     Route: 048
     Dates: start: 20060101
  23. MECLIZINE [Concomitant]
  24. QUININE SULFATE [Concomitant]
  25. METOCLOPRAMIDE [Concomitant]
  26. GABAPENTIN [Concomitant]
  27. AURODEX OTIC DROPS [Concomitant]
  28. TYLENOL-500 [Concomitant]
  29. CEFTIN [Concomitant]
  30. SYNTHROID [Concomitant]
  31. POTASSIUM CHLORIDE [Concomitant]
  32. RANITIDINE [Concomitant]
  33. NAPROXEN [Concomitant]
  34. RANITIDINE [Concomitant]
  35. CRESTOR [Concomitant]
  36. ASPIRIN [Concomitant]
  37. PREVACID [Concomitant]
  38. DEPO-MEDROL [Concomitant]
  39. NGT [Concomitant]
  40. DIGOXIN [Suspect]
     Dosage: 0.25 MG;M,W,F;PO
     Route: 048
     Dates: start: 20090101
  41. PROTONIX [Concomitant]
  42. FLEXERIL [Concomitant]
  43. ALLOPURINOL [Concomitant]
  44. PREMARIN [Concomitant]
  45. LEVOTHYROXINE SODIUM [Concomitant]
  46. BENZONATATE [Concomitant]
  47. MELOXICAM [Concomitant]
  48. LORTAB [Concomitant]
  49. ELAVIL [Concomitant]
  50. INDOMETHACIN [Concomitant]
  51. RYNEZE [Concomitant]

REACTIONS (66)
  - COUGH [None]
  - GASTRIC ULCER [None]
  - VOMITING [None]
  - PRESYNCOPE [None]
  - CARDIAC FAILURE CONGESTIVE [None]
  - RHINITIS ALLERGIC [None]
  - ASTHENIA [None]
  - MULTIPLE INJURIES [None]
  - ARTHRITIS [None]
  - UPPER GASTROINTESTINAL HAEMORRHAGE [None]
  - FAECES DISCOLOURED [None]
  - HAEMOGLOBIN DECREASED [None]
  - PALPITATIONS [None]
  - HYPERTENSION [None]
  - TRICUSPID VALVE INCOMPETENCE [None]
  - MUSCLE SPASMS [None]
  - RASH [None]
  - GASTROENTERITIS [None]
  - URINE OUTPUT DECREASED [None]
  - URINARY TRACT INFECTION [None]
  - SUBCLAVIAN ARTERY STENOSIS [None]
  - SYNCOPE [None]
  - PAIN [None]
  - ANXIETY [None]
  - BRONCHITIS [None]
  - HAEMATEMESIS [None]
  - PAIN IN EXTREMITY [None]
  - CHRONIC OBSTRUCTIVE PULMONARY DISEASE [None]
  - LYMPHADENOPATHY MEDIASTINAL [None]
  - PLEURISY [None]
  - NAUSEA [None]
  - MITRAL VALVE INCOMPETENCE [None]
  - DIVERTICULITIS [None]
  - ABDOMINAL PAIN LOWER [None]
  - EAR DISORDER [None]
  - FLANK PAIN [None]
  - HEPATIC STEATOSIS [None]
  - HYPOAESTHESIA [None]
  - GASTROINTESTINAL STROMAL TUMOUR [None]
  - FATIGUE [None]
  - GRANULOMA [None]
  - PULMONARY HYPERTENSION [None]
  - PLEURITIC PAIN [None]
  - DEFORMITY [None]
  - MUSCULAR WEAKNESS [None]
  - HEADACHE [None]
  - BREAST MASS [None]
  - CARDIOACTIVE DRUG LEVEL DECREASED [None]
  - SUPRAVENTRICULAR EXTRASYSTOLES [None]
  - OEDEMA PERIPHERAL [None]
  - IRRITABLE BOWEL SYNDROME [None]
  - MUSCULOSKELETAL DISORDER [None]
  - MYALGIA [None]
  - CONSTIPATION [None]
  - ELECTROCARDIOGRAM ST SEGMENT DEPRESSION [None]
  - NUCLEAR MAGNETIC RESONANCE IMAGING BRAIN ABNORMAL [None]
  - ECONOMIC PROBLEM [None]
  - UPPER RESPIRATORY TRACT INFECTION [None]
  - CORONARY ARTERY DISEASE [None]
  - NECK PAIN [None]
  - JOINT STIFFNESS [None]
  - BACK PAIN [None]
  - NASAL CONGESTION [None]
  - SINUS BRADYCARDIA [None]
  - MUSCULOSKELETAL PAIN [None]
  - VENTRICULAR EXTRASYSTOLES [None]
